FAERS Safety Report 6752516-0 (Version None)
Quarter: 2010Q2

REPORT INFORMATION
  Report Type: 
  Country: None (occurrence: None)
  Receive Date: 20100601
  Receipt Date: 20100601
  Transmission Date: 20101027
  Serious: No
  Sender: FDA-Public Use
  Company Number: None

PATIENT
  Age: 54 Year
  Sex: Female
  Weight: 74.8435 kg

DRUGS (1)
  1. PYLERA [Suspect]
     Indication: HELICOBACTER INFECTION
     Dosage: 3 CAPSULES 4 TIMES A DAY PO
     Route: 048
     Dates: start: 20100518, end: 20100520

REACTIONS (10)
  - CONDITION AGGRAVATED [None]
  - DEMENTIA [None]
  - DYSKINESIA [None]
  - FIBROMYALGIA [None]
  - HEADACHE [None]
  - HYPERKINESIA [None]
  - MUSCULOSKELETAL STIFFNESS [None]
  - NAUSEA [None]
  - NEURALGIA [None]
  - TREMOR [None]
